FAERS Safety Report 23875635 (Version 2)
Quarter: 2024Q3

REPORT INFORMATION
  Report Type: Spontaneous
  Country: AU (occurrence: AU)
  Receive Date: 20240520
  Receipt Date: 20240701
  Transmission Date: 20241017
  Serious: No
  Sender: MYLAN
  Company Number: AU-MYLANLABS-2024M1042238

PATIENT

DRUGS (1)
  1. EPIPEN [Suspect]
     Active Substance: EPINEPHRINE
     Indication: Product used for unknown indication
     Dosage: UNK
     Route: 065

REACTIONS (3)
  - Product leakage [None]
  - Product physical issue [None]
  - Product quality issue [None]
